FAERS Safety Report 10256827 (Version 1)
Quarter: 2014Q2

REPORT INFORMATION
  Report Type: Spontaneous
  Country: FR (occurrence: FR)
  Receive Date: 20140625
  Receipt Date: 20140625
  Transmission Date: 20141212
  Serious: Yes (Hospitalization)
  Sender: FDA-Public Use
  Company Number: FR-AMGEN-FRASP2014045794

PATIENT
  Age: 75 Year
  Sex: Female

DRUGS (7)
  1. NEULASTA [Suspect]
     Indication: PRODUCT USED FOR UNKNOWN INDICATION
     Dosage: 1 DF, 1 IN 1 DAY
     Route: 058
     Dates: start: 20140216, end: 20140216
  2. DOXORUBICIN [Concomitant]
     Indication: LUNG NEOPLASM MALIGNANT
     Dosage: UNK
     Dates: start: 20131206
  3. DOXORUBICIN [Concomitant]
     Indication: METASTASES TO LUNG
  4. HOLOXAN [Concomitant]
     Indication: METASTASES TO LUNG
     Dosage: UNK
     Dates: start: 20140429
  5. GRANOCYTE [Concomitant]
     Dosage: UNK
     Dates: start: 20140429
  6. INDAPAMIDE [Concomitant]
     Dosage: UNK
     Route: 048
  7. TIMOLOL [Concomitant]
     Dosage: UNK
     Route: 048

REACTIONS (1)
  - Eczema [Recovered/Resolved]
